FAERS Safety Report 18664624 (Version 4)
Quarter: 2021Q3

REPORT INFORMATION
  Report Type: Spontaneous
  Country: GB (occurrence: GB)
  Receive Date: 20201225
  Receipt Date: 20210818
  Transmission Date: 20211014
  Serious: Yes (Other)
  Sender: FDA-Public Use
  Company Number: GB-BIOVITRUM-2020GB7895

PATIENT
  Age: 55 Year
  Sex: Male

DRUGS (17)
  1. LOWPLAT [Concomitant]
     Dates: start: 2016
  2. VILDAGLIPTIN [Concomitant]
     Active Substance: VILDAGLIPTIN
  3. LIPIREX [Concomitant]
     Dates: start: 2016
  4. LOWPLAT [Concomitant]
     Dates: start: 2018
  5. ORFADIN [Suspect]
     Active Substance: NITISINONE
     Indication: ALKAPTONURIA
     Dates: start: 2016
  6. NORVASC [Concomitant]
     Active Substance: AMLODIPINE BESYLATE
     Dates: start: 2018
  7. GLUCOPHAGE [Concomitant]
     Active Substance: METFORMIN HYDROCHLORIDE
  8. GALVUSMET [Concomitant]
     Active Substance: METFORMIN HYDROCHLORIDE\VILDAGLIPTIN
  9. SUSTAC [Concomitant]
     Active Substance: NITROGLYCERIN
     Dates: start: 2016
  10. INSULIN [Concomitant]
     Active Substance: INSULIN NOS
  11. REGAIN [Concomitant]
     Active Substance: MINOXIDIL
  12. METHYCOBAL [Concomitant]
     Active Substance: METHYLCOBALAMIN
  13. SUSTAC [Concomitant]
     Active Substance: NITROGLYCERIN
     Dates: start: 2018
  14. LIPIREX [Concomitant]
     Dates: start: 2018
  15. CONCOR [Concomitant]
     Active Substance: BISOPROLOL FUMARATE
     Dates: start: 2016
  16. NORVASC [Concomitant]
     Active Substance: AMLODIPINE BESYLATE
     Dates: start: 2016
  17. CONCOR [Concomitant]
     Active Substance: BISOPROLOL FUMARATE
     Dates: start: 2018

REACTIONS (3)
  - Lenticular opacities [Not Recovered/Not Resolved]
  - Cataract [Unknown]
  - Amino acid level increased [Not Recovered/Not Resolved]

NARRATIVE: CASE EVENT DATE: 2016
